FAERS Safety Report 13771495 (Version 1)
Quarter: 2017Q3

REPORT INFORMATION
  Report Type: Spontaneous
  Country: CN (occurrence: CN)
  Receive Date: 20170720
  Receipt Date: 20170720
  Transmission Date: 20171127
  Serious: Yes (Hospitalization, Disabling)
  Sender: FDA-Public Use
  Company Number: CN-BION-006500

PATIENT
  Age: 52 Year
  Sex: Female

DRUGS (2)
  1. LIDOCAINE UNKNOWN PRODUCTS [Suspect]
     Active Substance: LIDOCAINE HYDROCHLORIDE
     Indication: ANAESTHESIA
     Route: 061
  2. PROPOFOL. [Concomitant]
     Active Substance: PROPOFOL
     Indication: GENERAL ANAESTHESIA
     Route: 042

REACTIONS (5)
  - Toxicity to various agents [None]
  - Coma [Unknown]
  - Pulmonary haemorrhage [Unknown]
  - Cardio-respiratory arrest [Unknown]
  - Ventricular extrasystoles [None]
